FAERS Safety Report 11494284 (Version 1)
Quarter: 2015Q3

REPORT INFORMATION
  Report Type: Spontaneous
  Country: AU (occurrence: GB)
  Receive Date: 20150911
  Receipt Date: 20150911
  Transmission Date: 20151125
  Serious: Yes (Other)
  Sender: FDA-Public Use
  Company Number: AU-PERRIGO-15AU009074

PATIENT
  Age: 30 Year
  Sex: Male

DRUGS (3)
  1. DIFLUCORTOLONE VALERATE [Suspect]
     Active Substance: DIFLUCORTOLONE VALERATE
     Indication: ECZEMA
     Dosage: UNK
     Route: 061
  2. HYDROCORTISONE 2.5% 1F3 [Suspect]
     Active Substance: HYDROCORTISONE
     Indication: ECZEMA
     Dosage: UNK
     Route: 061
  3. BECLOMETHASONE DIPROPIONATE        /00212602/ [Suspect]
     Active Substance: BECLOMETHASONE DIPROPIONATE
     Indication: ECZEMA
     Dosage: UNK
     Route: 061

REACTIONS (3)
  - Osteonecrosis [Unknown]
  - Glaucoma [Recovered/Resolved]
  - Cataract [Recovered/Resolved]

NARRATIVE: CASE EVENT DATE: 199011
